FAERS Safety Report 6424947-X (Version None)
Quarter: 2009Q4

REPORT INFORMATION
  Report Type: 
  Country: None (occurrence: None)
  Receive Date: 20091103
  Receipt Date: 20091027
  Transmission Date: 20100525
  Serious: Yes (Hospitalization, Disabling, Other)
  Sender: FDA-Public Use
  Company Number: US-ELI_LILLY_AND_COMPANY-US200909002353

PATIENT
  Sex: Female

DRUGS (12)
  1. HUMALOG [Suspect]
     Dosage: UNK, AS NEEDED
     Dates: start: 19950101
  2. HUMALOG [Suspect]
     Indication: TYPE 1 DIABETES MELLITUS
  3. LANTUS [Concomitant]
  4. DIOVAN [Concomitant]
  5. LEXAPRO [Concomitant]
  6. METOPROLOL [Concomitant]
  7. PERPHENAZINE [Concomitant]
  8. SIMVASTATIN [Concomitant]
  9. SYNTHROID [Concomitant]
  10. VALIUM [Concomitant]
  11. WELLBUTRIN XL [Concomitant]
  12. EYE DROPS [Concomitant]

REACTIONS (3)
  - BLINDNESS [None]
  - CORONARY ARTERY BYPASS [None]
  - MYOCARDIAL INFARCTION [None]
